FAERS Safety Report 6029790-1 (Version None)
Quarter: 2009Q1

REPORT INFORMATION
  Report Type: 
  Country: None (occurrence: None)
  Receive Date: 20090106
  Receipt Date: 20090106
  Transmission Date: 20090719
  Serious: Yes (Hospitalization)
  Sender: FDA-Public Use
  Company Number: None

PATIENT
  Sex: Female
  Weight: 72.5755 kg

DRUGS (3)
  1. BONIVA [Suspect]
     Indication: OSTEOPENIA
     Dosage: 1 PER MONTH 1 PER MONTH BY MOUTH
     Route: 048
     Dates: start: 20080416
  2. BONIVA [Suspect]
     Indication: OSTEOPENIA
     Dosage: 1 PER MONTH 1 PER MONTH BY MOUTH
     Route: 048
     Dates: start: 20080516
  3. BONIVA [Suspect]
     Indication: OSTEOPENIA
     Dosage: 1 PER MONTH 1 PER MONTH BY MOUTH
     Route: 048
     Dates: start: 20080616

REACTIONS (6)
  - ABDOMINAL DISCOMFORT [None]
  - DIARRHOEA [None]
  - DIZZINESS [None]
  - DYSPEPSIA [None]
  - HEADACHE [None]
  - URTICARIA [None]
